FAERS Safety Report 15600410 (Version 1)
Quarter: 2018Q4

REPORT INFORMATION
  Report Type: Spontaneous
  Country: ZA (occurrence: ZA)
  Receive Date: 20181109
  Receipt Date: 20181109
  Transmission Date: 20190205
  Serious: Yes (Death, Other)
  Sender: FDA-Public Use
  Company Number: ZA-PFIZER INC-2018457364

PATIENT
  Age: 72 Year
  Sex: Male

DRUGS (5)
  1. NOVORAPID [Suspect]
     Active Substance: INSULIN ASPART
     Dosage: 100 IU, UNK
  2. PURESIS [Suspect]
     Active Substance: FUROSEMIDE
     Dosage: 40 MG, UNK
  3. SPIRACTIN (SPIRONOLACTONE) [Suspect]
     Active Substance: SPIRONOLACTONE
     Dosage: 25 MG, UNK
  4. ALDACTONE [Suspect]
     Active Substance: SPIRONOLACTONE
     Dosage: 25 MG, UNK
  5. CARLOC [Suspect]
     Active Substance: CARVEDILOL
     Dosage: 25 MG, UNK

REACTIONS (1)
  - Renal cancer [Fatal]
